FAERS Safety Report 10034004 (Version 3)
Quarter: 2014Q2

REPORT INFORMATION
  Report Type: Spontaneous
  Country: JP (occurrence: None)
  Receive Date: 20140320
  Receipt Date: 20140429
  Transmission Date: 20141212
  Serious: Yes (Life-Threatening, Hospitalization, Other)
  Sender: FDA-Public Use
  Company Number: 2189605

PATIENT
  Age: 52 Year
  Sex: Male
  Weight: 73 kg

DRUGS (18)
  1. DEXMEDETOMIDINE HYDROCHLORIDE [Suspect]
     Indication: DELIRIUM
     Dosage: 1 DAY
     Route: 041
     Dates: start: 20140103, end: 20140106
  2. HALOPERIDOL [Concomitant]
  3. BROTIZOLAM [Suspect]
     Indication: DELIRIUM
     Route: 048
     Dates: start: 20131231, end: 20140106
  4. BROTIZOLAM [Suspect]
     Indication: SEDATION
     Route: 048
     Dates: start: 20131231, end: 20140106
  5. RISPERIDONE [Suspect]
     Indication: DELIRIUM
     Route: 048
     Dates: start: 20131231, end: 20140106
  6. RISPERIDONE [Suspect]
     Indication: SEDATION
     Route: 048
     Dates: start: 20131231, end: 20140106
  7. PEROSPIRONE HYDROCHLORIDE [Suspect]
     Indication: SEDATION
     Route: 048
     Dates: start: 20140104, end: 20140106
  8. PEROSPIRONE HYDROCHLORIDE [Suspect]
     Indication: DELIRIUM
     Route: 048
     Dates: start: 20140104, end: 20140106
  9. (HYDRROXYZINE HYDROCHLORIDE) [Concomitant]
  10. (NIFEDIPINE) [Concomitant]
  11. (LANSOPRAZOLE) (LANSOPRAZOLE) [Concomitant]
  12. (BISOPROLOL FUMARATE) [Concomitant]
  13. (MAGNESIUM OXIDE) [Concomitant]
  14. (LOXOPROFEN SODIUM) [Concomitant]
  15. (SENNOSIDE A+B) [Concomitant]
  16. (FUROSEMIDE) [Concomitant]
  17. (NICARDIPINE HYDROCHLORIDE) [Concomitant]
  18. (SALINE /00075401/) [Concomitant]

REACTIONS (3)
  - Respiratory arrest [None]
  - Cardiac arrest [None]
  - Hypoxic-ischaemic encephalopathy [None]
